FAERS Safety Report 24638012 (Version 2)
Quarter: 2025Q1

REPORT INFORMATION
  Report Type: Spontaneous
  Country: US (occurrence: US)
  Receive Date: 20241119
  Receipt Date: 20250303
  Transmission Date: 20250408
  Serious: No
  Sender: PFIZER
  Company Number: US-PFIZER INC-PV202400149484

PATIENT
  Age: 75 Year
  Sex: Female

DRUGS (1)
  1. IBRANCE [Suspect]
     Active Substance: PALBOCICLIB

REACTIONS (2)
  - Herpes zoster [Unknown]
  - Fatigue [Unknown]

NARRATIVE: CASE EVENT DATE: 20240101
